FAERS Safety Report 10447186 (Version 1)
Quarter: 2014Q3

REPORT INFORMATION
  Report Type: Spontaneous
  Country: US (occurrence: US)
  Receive Date: 20140911
  Receipt Date: 20140911
  Transmission Date: 20150326
  Serious: No
  Sender: FDA-Public Use
  Company Number: US-PFIZER INC-2014250556

PATIENT
  Sex: Male

DRUGS (3)
  1. EPLERENONE. [Suspect]
     Active Substance: EPLERENONE
     Dosage: 25 MG, UNK
  2. EPLERENONE. [Suspect]
     Active Substance: EPLERENONE
     Indication: HYPERTENSION
     Dosage: 50 MG, UNK (50MG UNKNOWN FREQUENCY FOR 2 WEEKS)
     Dates: start: 201406
  3. EPLERENONE. [Suspect]
     Active Substance: EPLERENONE
     Dosage: 75 MG, UNK
     Dates: start: 2014

REACTIONS (1)
  - Blood pressure inadequately controlled [Unknown]

NARRATIVE: CASE EVENT DATE: 2014
